FAERS Safety Report 10799091 (Version 1)
Quarter: 2015Q1

REPORT INFORMATION
  Report Type: Spontaneous
  Country: US (occurrence: US)
  Receive Date: 20150216
  Receipt Date: 20150216
  Transmission Date: 20150721
  Serious: No
  Sender: FDA-Public Use
  Company Number: US-ALLERGAN-1402959US

PATIENT
  Sex: Female

DRUGS (9)
  1. ASA [Concomitant]
     Active Substance: ASPIRIN
     Indication: PRODUCT USED FOR UNKNOWN INDICATION
     Dosage: UNK
  2. FISH OIL [Concomitant]
     Active Substance: FISH OIL
     Indication: SUPPLEMENTATION THERAPY
     Dosage: UNK
  3. VITAMIN D                          /00107901/ [Concomitant]
     Active Substance: ERGOCALCIFEROL
     Indication: SUPPLEMENTATION THERAPY
     Dosage: UNK
  4. PRESERVISION [Concomitant]
     Indication: SUPPLEMENTATION THERAPY
     Dosage: UNK
  5. THERATEARS [Concomitant]
     Active Substance: CARBOXYMETHYLCELLULOSE SODIUM
     Indication: EYE LUBRICATION THERAPY
     Dosage: 2 GTT, PRN
     Route: 047
  6. RESTASIS [Suspect]
     Active Substance: CYCLOSPORINE
     Indication: DRY EYE
     Dosage: 2 GTT, BID
     Route: 047
     Dates: start: 201401
  7. GENTEAL                            /00445101/ [Concomitant]
     Indication: EYE LUBRICATION THERAPY
     Dosage: 2 GTT, PRN
     Route: 047
  8. SPIRIVA [Concomitant]
     Active Substance: TIOTROPIUM BROMIDE MONOHYDRATE
     Indication: LUNG DISORDER
     Dosage: UNK
  9. EYE INJECTIONS NOS [Concomitant]
     Indication: MACULAR DEGENERATION
     Dosage: UNK

REACTIONS (2)
  - Multiple use of single-use product [Unknown]
  - Eye irritation [Not Recovered/Not Resolved]
